FAERS Safety Report 4789480-X (Version None)
Quarter: 2005Q4

REPORT INFORMATION
  Report Type: 
  Country: None (occurrence: None)
  Receive Date: 20051006
  Receipt Date: 20050922
  Transmission Date: 20060501
  Serious: Yes (Hospitalization)
  Sender: FDA-Public Use
  Company Number: 2005GB01851

PATIENT
  Age: 28979 Day
  Sex: Female

DRUGS (14)
  1. IRESSA [Suspect]
     Indication: NON-SMALL CELL LUNG CANCER STAGE IV
     Route: 048
     Dates: start: 20050805, end: 20050903
  2. IRESSA [Suspect]
     Route: 048
     Dates: start: 20050917
  3. ACETAMINOPHEN W/ CODEINE [Concomitant]
     Indication: OSTEOARTHRITIS
     Dosage: 16/1000 MG
     Route: 048
  4. ASPIRIN [Concomitant]
     Indication: CEREBROVASCULAR ACCIDENT PROPHYLAXIS
     Route: 048
     Dates: start: 20050610
  5. FUROSEMIDE [Concomitant]
     Indication: CARDIAC FAILURE CONGESTIVE
     Route: 048
     Dates: start: 19920101, end: 20050914
  6. QUININE SULPHATE [Concomitant]
     Indication: MUSCLE SPASMS
     Route: 048
  7. PREDNISOLONE [Concomitant]
     Indication: LOWER RESPIRATORY TRACT INFECTION
     Route: 048
     Dates: start: 20050725
  8. PERINDOPRIL [Concomitant]
     Indication: ESSENTIAL HYPERTENSION
     Route: 048
     Dates: start: 20050610, end: 20050914
  9. BECLAZONE EASI-BREATHE INHALER [Concomitant]
     Indication: ASTHMA
     Route: 055
  10. ATROVENT [Concomitant]
     Indication: ASTHMA
     Route: 055
     Dates: end: 20050914
  11. SALBUTAMOL EASI-BREATHE CFC-FREE INHALER [Concomitant]
     Indication: CHRONIC OBSTRUCTIVE PULMONARY DISEASE
     Route: 055
  12. SALBUTAMOL EASI-BREATHE CFC-FREE INHALER [Concomitant]
     Indication: ASTHMA
     Route: 055
  13. ZINC GLUCONATE [Concomitant]
     Indication: VITAMIN SUPPLEMENTATION
     Route: 048
     Dates: start: 20000101
  14. SPIRONOLACTONE [Concomitant]
     Indication: CARDIAC FAILURE CONGESTIVE
     Route: 048
     Dates: end: 20050914

REACTIONS (3)
  - DEHYDRATION [None]
  - DIARRHOEA [None]
  - RENAL IMPAIRMENT [None]
